FAERS Safety Report 5786245-7 (Version None)
Quarter: 2008Q2

REPORT INFORMATION
  Report Type: 
  Country: None (occurrence: None)
  Receive Date: 20080624
  Receipt Date: 20080613
  Transmission Date: 20081010
  Serious: Yes (Hospitalization)
  Sender: FDA-Public Use
  Company Number: MX-ELI_LILLY_AND_COMPANY-MX200805001485

PATIENT
  Sex: Male

DRUGS (1)
  1. DULOXETINE HYDROCHLORIDE [Suspect]
     Indication: URINARY RETENTION
     Dosage: 60 MG, UNKNOWN
     Route: 048
     Dates: start: 20070401

REACTIONS (1)
  - PSYCHOTIC DISORDER [None]
